FAERS Safety Report 11951233 (Version 1)
Quarter: 2016Q1

REPORT INFORMATION
  Report Type: Spontaneous
  Country: PL (occurrence: PL)
  Receive Date: 20160126
  Receipt Date: 20160126
  Transmission Date: 20160526
  Serious: Yes (Other)
  Sender: FDA-Public Use
  Company Number: PHHY2016PL006896

PATIENT
  Sex: Female

DRUGS (1)
  1. TULIP [Suspect]
     Active Substance: ATORVASTATIN
     Indication: HYPERCHOLESTEROLAEMIA
     Dosage: 10 MG,
     Route: 065
     Dates: start: 2009

REACTIONS (1)
  - Alopecia [Not Recovered/Not Resolved]
